FAERS Safety Report 21652976 (Version 1)
Quarter: 2022Q4

REPORT INFORMATION
  Report Type: Spontaneous
  Country: US (occurrence: None)
  Receive Date: 20221125
  Receipt Date: 20221125
  Transmission Date: 20230112
  Serious: Yes (Hospitalization)
  Sender: FDA-Public Use
  Company Number: None

PATIENT
  Sex: Female

DRUGS (10)
  1. HUMIRA [Suspect]
     Active Substance: ADALIMUMAB
     Indication: Rheumatoid arthritis
     Dosage: 40 MG/0.4ML SUBCUTANEOUS??INJECT 0.4 ML (40 MG TOTAL) UNDER THE SKIN (SUBCUTANEOUS INJECTION) EVERY
     Route: 058
     Dates: start: 20191018
  2. ALENDRONATE [Concomitant]
  3. CALCIUM CHW GUMMIES [Concomitant]
  4. FISH OIL [Concomitant]
  5. FOLIC ACID [Concomitant]
  6. METHOTREXATE [Concomitant]
  7. MULTIVITAMIN [Concomitant]
  8. SYNTHROID [Concomitant]
  9. VITAMIN C CHW [Concomitant]
  10. VITAMIN D3 [Concomitant]
     Active Substance: CHOLECALCIFEROL

REACTIONS (1)
  - Surgery [None]
